FAERS Safety Report 15377932 (Version 3)
Quarter: 2019Q1

REPORT INFORMATION
  Report Type: Spontaneous
  Country: US (occurrence: US)
  Receive Date: 20180913
  Receipt Date: 20190208
  Transmission Date: 20190417
  Serious: No
  Sender: FDA-Public Use
  Company Number: US-AMGEN-USASP2018126317

PATIENT
  Age: 22 Year
  Sex: Male

DRUGS (5)
  1. ALEFACEPT [Concomitant]
     Active Substance: ALEFACEPT
     Dosage: 15 MG, QWK
     Route: 030
     Dates: start: 200404, end: 200407
  2. ALEFACEPT [Concomitant]
     Active Substance: ALEFACEPT
     Indication: PSORIASIS
     Dosage: UNK
  3. ETANERCEPT [Suspect]
     Active Substance: ETANERCEPT
     Dosage: 25 MG, 2 TIMES/WK
     Route: 058
     Dates: start: 200403
  4. ETANERCEPT [Suspect]
     Active Substance: ETANERCEPT
     Indication: PSORIATIC ARTHROPATHY
     Dosage: 50 MG, 2 TIMES/WK
     Route: 058
     Dates: start: 200308
  5. ETANERCEPT [Suspect]
     Active Substance: ETANERCEPT
     Indication: PSORIASIS
     Dosage: 25 MG, 2 TIMES/WK
     Route: 058
     Dates: start: 200302

REACTIONS (1)
  - Drug ineffective [Unknown]
